FAERS Safety Report 7101137-9 (Version None)
Quarter: 2010Q4

REPORT INFORMATION
  Report Type: 
  Country: None (occurrence: None)
  Receive Date: 20101105
  Receipt Date: 20100910
  Transmission Date: 20110411
  Serious: No
  Sender: FDA-Public Use
  Company Number: 2010-00905

PATIENT
  Age: 87 Year
  Sex: Male
  Weight: 62.5964 kg

DRUGS (10)
  1. ZICAM COLD REMEDY RAPIDMELTS WITH VITAMIN C [Suspect]
     Dosage: SPORADIC X 6 DAYS;
     Dates: start: 20100904, end: 20100910
  2. SINEMET [Concomitant]
  3. PREVACID [Concomitant]
  4. FISH OIL [Concomitant]
  5. ASCORBIC ACID [Concomitant]
  6. VITAMIN B-100 [Concomitant]
  7. ASPIRIN [Concomitant]
  8. VITAMIN D [Concomitant]
  9. MAGNESIUM [Concomitant]
  10. CALCIUM [Concomitant]

REACTIONS (4)
  - AGEUSIA [None]
  - APTYALISM [None]
  - ARTHRALGIA [None]
  - MUSCULOSKELETAL PAIN [None]
